FAERS Safety Report 13220244 (Version 1)
Quarter: 2017Q1

REPORT INFORMATION
  Report Type: Other
  Country: US (occurrence: US)
  Receive Date: 20170211
  Receipt Date: 20170211
  Transmission Date: 20170428
  Serious: No
  Sender: FDA-Public Use
  Company Number: US-ACORDA-ACO_128730_2016

PATIENT
  Age: 30 Year
  Sex: Female

DRUGS (1)
  1. AMPYRA [Suspect]
     Active Substance: DALFAMPRIDINE
     Indication: PRODUCT USED FOR UNKNOWN INDICATION
     Dosage: UNK
     Route: 065

REACTIONS (13)
  - Throat irritation [Recovered/Resolved]
  - Insomnia [Recovering/Resolving]
  - Headache [Recovered/Resolved]
  - Burning sensation [Recovering/Resolving]
  - Pruritus [Recovering/Resolving]
  - Asthenia [Recovered/Resolved]
  - Paraesthesia [Recovering/Resolving]
  - Nausea [Recovered/Resolved]
  - Nasal discomfort [Recovered/Resolved]
  - Oropharyngeal pain [Recovered/Resolved]
  - Dizziness [Recovered/Resolved]
  - Balance disorder [Recovered/Resolved]
  - Dyspepsia [Recovered/Resolved]

NARRATIVE: CASE EVENT DATE: 2016
